FAERS Safety Report 4829670-0 (Version None)
Quarter: 2005Q4

REPORT INFORMATION
  Report Type: 
  Country: None (occurrence: None)
  Receive Date: 20051116
  Receipt Date: 20051109
  Transmission Date: 20060501
  Serious: Yes (Other)
  Sender: FDA-Public Use
  Company Number: US-MERCK-0511USA01715

PATIENT
  Age: 59 Year
  Sex: Male

DRUGS (2)
  1. HYDRODIURIL [Suspect]
     Indication: ESSENTIAL HYPERTENSION
     Route: 048
  2. ALDOMET [Suspect]
     Indication: ESSENTIAL HYPERTENSION
     Route: 048

REACTIONS (2)
  - DRUG INEFFECTIVE [None]
  - SYSTEMIC LUPUS ERYTHEMATOSUS [None]
